FAERS Safety Report 13728883 (Version 1)
Quarter: 2017Q3

REPORT INFORMATION
  Report Type: Report from Study
  Country: US (occurrence: US)
  Receive Date: 20170707
  Receipt Date: 20170707
  Transmission Date: 20171127
  Serious: No
  Sender: FDA-Public Use
  Company Number: US-AMGEN-USASL2017099975

PATIENT
  Age: 55 Year
  Sex: Female

DRUGS (2)
  1. ENBREL [Suspect]
     Active Substance: ETANERCEPT
     Indication: PSORIATIC ARTHROPATHY
     Dosage: UNK
     Route: 065
  2. ENBREL [Suspect]
     Active Substance: ETANERCEPT
     Dosage: UNK,  2 TIMES/WK
     Route: 065

REACTIONS (5)
  - Arthropathy [Unknown]
  - Dysgraphia [Unknown]
  - Pain in extremity [Unknown]
  - Impaired driving ability [Unknown]
  - Unevaluable event [Unknown]
